FAERS Safety Report 6280029-1 (Version None)
Quarter: 2009Q3

REPORT INFORMATION
  Report Type: 
  Country: None (occurrence: None)
  Receive Date: 20090723
  Receipt Date: 20090713
  Transmission Date: 20100115
  Serious: Yes (Death)
  Sender: FDA-Public Use
  Company Number: US-ELI_LILLY_AND_COMPANY-US200906002775

PATIENT
  Age: 30 Year
  Sex: Female

DRUGS (6)
  1. CYMBALTA [Suspect]
     Indication: GENERALISED ANXIETY DISORDER
     Dosage: 30 MG, 2/D
     Dates: start: 20090205
  2. KLONOPIN [Concomitant]
  3. METFORMIN HCL [Concomitant]
  4. MOBIC [Concomitant]
  5. DEPAKOTE [Concomitant]
  6. SEROQUEL [Concomitant]

REACTIONS (1)
  - DEATH [None]
